FAERS Safety Report 7250385-6 (Version None)
Quarter: 2011Q1

REPORT INFORMATION
  Report Type: 
  Country: None (occurrence: None)
  Receive Date: 20110128
  Receipt Date: 20110124
  Transmission Date: 20110831
  Serious: Yes (Hospitalization)
  Sender: FDA-Public Use
  Company Number: CA-ROCHE-691857

PATIENT
  Sex: Female
  Weight: 92.8 kg

DRUGS (22)
  1. BLINDED TOCILIZUMAB [Suspect]
     Indication: RHEUMATOID ARTHRITIS
     Dosage: FORM: VIAL.
     Route: 042
     Dates: start: 20091209
  2. HYDROCHLOROTHIAZIDE [Concomitant]
     Dates: start: 20091023
  3. TYLENOL W/ CODEINE NO. 3 [Concomitant]
     Route: 048
     Dates: start: 20081022
  4. ATORVASTATIN [Concomitant]
     Dates: start: 20100315
  5. METOPROLOL [Concomitant]
     Dates: start: 20100315, end: 20100315
  6. METOPROLOL [Concomitant]
     Dates: start: 20100316
  7. RAMIPRIL [Concomitant]
     Dates: start: 20100315, end: 20100315
  8. NAPROXEN [Suspect]
     Dosage: DRUG NAME REPORTED AS NAPROXYEN.
     Route: 065
     Dates: start: 20081022
  9. BLINDED METHOTREXATE [Suspect]
     Indication: RHEUMATOID ARTHRITIS
     Dosage: FREQUENCY: QS.
     Route: 048
     Dates: start: 20091209
  10. CALCIUM [Concomitant]
     Dates: start: 20090601
  11. VITAMINE D [Concomitant]
     Dates: start: 20090601
  12. RAMIPRIL [Concomitant]
     Dates: start: 20100316
  13. BLINDED TOCILIZUMAB [Suspect]
     Route: 042
     Dates: start: 20100107
  14. BLINDED TOCILIZUMAB [Suspect]
     Dosage: LAST DOSE PRIOR TO SAE ON 02 MARCH 2010
     Route: 042
     Dates: start: 20100302
  15. LEVOTHYROXINE SODIUM [Concomitant]
     Dates: start: 19990101
  16. FOLIC ACID [Concomitant]
     Dosage: DOSE: 5 MG QS.
     Dates: start: 20091211
  17. ASPIRIN [Concomitant]
     Dates: start: 20100315
  18. PREDNISONE [Suspect]
     Route: 065
     Dates: start: 20091110
  19. PREDNISONE [Suspect]
     Route: 065
     Dates: start: 20100315
  20. CLOPIDOGREL [Concomitant]
     Dates: start: 20100315
  21. BLINDED TOCILIZUMAB [Suspect]
     Route: 042
     Dates: start: 20100202
  22. ZOPICLONE [Concomitant]
     Dates: start: 20091117

REACTIONS (1)
  - ACUTE MYOCARDIAL INFARCTION [None]
